FAERS Safety Report 4480459-4 (Version None)
Quarter: 2004Q4

REPORT INFORMATION
  Report Type: 
  Country: None (occurrence: None)
  Receive Date: 20041018
  Receipt Date: 20041004
  Transmission Date: 20050328
  Serious: Yes (Death)
  Sender: FDA-Public Use
  Company Number: S04-USA-02684-01

PATIENT
  Age: 72 Year
  Sex: Female
  Weight: 46.7205 kg

DRUGS (11)
  1. LEXAPRO [Suspect]
     Indication: DEPRESSION
     Dosage: 10 MG QD PO
     Route: 048
     Dates: start: 20031003, end: 20031016
  2. LEXAPRO [Suspect]
     Indication: DEPRESSION
     Dosage: 20 MG QD PO
     Route: 048
     Dates: start: 20031017, end: 20031019
  3. LEXAPRO [Suspect]
     Indication: DEPRESSION
     Dosage: 40 MG QD PO
     Route: 048
     Dates: start: 20031020, end: 20031021
  4. LEXAPRO [Suspect]
     Indication: DEPRESSION
     Dosage: 20 MG QD PO
     Route: 048
     Dates: start: 20031022, end: 20031031
  5. LEXAPRO [Suspect]
     Indication: DEPRESSION
     Dosage: 30 MG QD PO
     Route: 048
     Dates: start: 20031101, end: 20040326
  6. WELLBUTRIN [Concomitant]
  7. REMERON [Concomitant]
  8. ZOLOFT [Concomitant]
  9. LORAZEPAM [Concomitant]
  10. TRAZODONE HCL [Concomitant]
  11. ZYPREXA [Concomitant]

REACTIONS (24)
  - ANHEDONIA [None]
  - CARBON MONOXIDE POISONING [None]
  - COMPLETED SUICIDE [None]
  - CONDITION AGGRAVATED [None]
  - DEATH OF SIBLING [None]
  - DECREASED APPETITE [None]
  - DECREASED INTEREST [None]
  - DISTURBANCE IN ATTENTION [None]
  - DRUG EFFECT DECREASED [None]
  - EARLY MORNING AWAKENING [None]
  - EMOTIONAL DISTRESS [None]
  - FEELING ABNORMAL [None]
  - GENERALISED ANXIETY DISORDER [None]
  - HYPERSOMNIA [None]
  - MAJOR DEPRESSION [None]
  - MALAISE [None]
  - MOOD ALTERED [None]
  - PARAESTHESIA [None]
  - READING DISORDER [None]
  - RELATIONSHIP BREAKDOWN [None]
  - RESTLESSNESS [None]
  - SLEEP DISORDER [None]
  - THINKING ABNORMAL [None]
  - WEIGHT DECREASED [None]
